FAERS Safety Report 9298010 (Version 3)
Quarter: 2013Q4

REPORT INFORMATION
  Report Type: Spontaneous
  Country: IT (occurrence: IT)
  Receive Date: 20130520
  Receipt Date: 20131021
  Transmission Date: 20140711
  Serious: Yes (Hospitalization)
  Sender: FDA-Public Use
  Company Number: IT-SANOFI-AVENTIS-2013SA047438

PATIENT
  Age: 55 Year
  Sex: Male

DRUGS (9)
  1. LASIX [Suspect]
     Indication: ASCITES
     Route: 048
     Dates: start: 20120320
  2. LASIX [Suspect]
     Indication: ASCITES
     Route: 048
     Dates: start: 20120725
  3. EVEROLIMUS [Concomitant]
     Indication: LIVER TRANSPLANT
     Route: 048
     Dates: start: 20120328, end: 20130509
  4. TACROLIMUS [Concomitant]
     Indication: LIVER TRANSPLANT
     Route: 048
     Dates: start: 20120320, end: 20130509
  5. DELTACORTENE [Concomitant]
  6. PLASIL [Concomitant]
  7. BACTRIM FORTE [Concomitant]
  8. ZELITREX [Concomitant]
  9. LUVION [Concomitant]

REACTIONS (2)
  - Ascites [Recovering/Resolving]
  - Underdose [Unknown]
